FAERS Safety Report 4523340-4 (Version None)
Quarter: 2004Q4

REPORT INFORMATION
  Report Type: 
  Country: None (occurrence: None)
  Receive Date: 20041209
  Receipt Date: 20041209
  Transmission Date: 20050328
  Serious: Yes (Other)
  Sender: FDA-Public Use
  Company Number: None

PATIENT
  Age: 83 Year
  Sex: Male

DRUGS (5)
  1. GATIFLOXACIN [Suspect]
     Indication: PYELONEPHRITIS
     Dosage: 400MG  QD    ORAL
     Route: 048
     Dates: start: 20040322, end: 20040326
  2. RANITIDINE [Concomitant]
  3. FEXOFENADINE [Concomitant]
  4. SIMVASTATIN [Concomitant]
  5. ASPIRIN [Concomitant]

REACTIONS (1)
  - HYPERGLYCAEMIA [None]
